FAERS Safety Report 21416509 (Version 1)
Quarter: 2022Q4

REPORT INFORMATION
  Report Type: Spontaneous
  Country: IT (occurrence: IT)
  Receive Date: 20221006
  Receipt Date: 20221006
  Transmission Date: 20230113
  Serious: Yes (Other)
  Sender: FDA-Public Use
  Company Number: IT-MLMSERVICE-2022091637991351

PATIENT
  Age: 35 Year
  Sex: Male

DRUGS (7)
  1. ETOPOSIDE [Suspect]
     Active Substance: ETOPOSIDE
     Indication: Extragonadal primary seminoma (pure)
     Dosage: D 1-5, EVERY 3 WEEKS
  2. CISPLATIN [Suspect]
     Active Substance: CISPLATIN
     Indication: Extragonadal primary seminoma (pure)
     Dosage: D 1-5, EVERY 3 WEEKS
  3. BLEOMYCIN [Suspect]
     Active Substance: BLEOMYCIN SULFATE
     Indication: Extragonadal primary seminoma (pure)
     Dosage: DAY 2, 9, 16, EVERY 3 WEEKS
  4. ESOMEPRAZOLE [Concomitant]
     Active Substance: ESOMEPRAZOLE
     Indication: Oesophagitis
  5. ENOXAPARIN [Concomitant]
     Active Substance: ENOXAPARIN
     Indication: Jugular vein thrombosis
  6. ENOXAPARIN [Concomitant]
     Active Substance: ENOXAPARIN
     Indication: Axillary vein thrombosis
  7. ESOMEPRAZOLE [Concomitant]
     Active Substance: ESOMEPRAZOLE
     Indication: Chronic gastritis

REACTIONS (2)
  - Brachiocephalic vein thrombosis [Recovered/Resolved]
  - Off label use [Unknown]
